FAERS Safety Report 10378861 (Version 1)
Quarter: 2014Q1

REPORT INFORMATION
  Report Type: Spontaneous
  Country: US (occurrence: None)
  Receive Date: 20140306
  Receipt Date: 20140306
  Transmission Date: 20141002
  Serious: Yes (Hospitalization, Other)
  Sender: FDA-Public Use
  Company Number: 163-21880-13051329

PATIENT
  Age: 88 Year
  Sex: Male

DRUGS (9)
  1. REVLIMID (LENALIDOMIDE) (10 MILLIGRAM, CAPSULES) [Suspect]
     Indication: MYELODYSPLASTIC SYNDROME
     Dosage: 10 MG, 28 IN 28 D, PO
     Route: 048
     Dates: start: 20130313
  2. PROCRIT (ERYTHROPOIETIN) [Concomitant]
  3. FAMVIR (FAMCICLOVIR) [Concomitant]
  4. CRANBERRY (VACCINIUM MACROCARPON JUICE) [Concomitant]
  5. ALPHAGAN P (BRIMONIDINE TARTRATE) [Concomitant]
  6. ATENOLOL [Concomitant]
  7. CALCIUM 600+D (LEKOVIT CA) [Concomitant]
  8. FISH OIL [Concomitant]
  9. FLUTICASONE PROPIONATE [Concomitant]

REACTIONS (3)
  - Anaemia [None]
  - Urinary tract infection [None]
  - Full blood count decreased [None]
